FAERS Safety Report 10752816 (Version 1)
Quarter: 2015Q1

REPORT INFORMATION
  Report Type: Spontaneous
  Country: US (occurrence: US)
  Receive Date: 20150130
  Receipt Date: 20150130
  Transmission Date: 20150721
  Serious: Yes (Hospitalization)
  Sender: FDA-Public Use
  Company Number: US-TAKEDA-2015TUS001005

PATIENT
  Sex: Male

DRUGS (4)
  1. COLCRYS [Suspect]
     Active Substance: COLCHICINE
     Dosage: 0.6 MG, QOD
     Route: 048
     Dates: start: 201412
  2. COLCRYS [Suspect]
     Active Substance: COLCHICINE
     Indication: GOUT
     Dosage: 0.6 MG, UNK
     Route: 048
     Dates: end: 201412
  3. ALLOPURINOL. [Concomitant]
     Active Substance: ALLOPURINOL
     Indication: GOUT
     Dosage: 300 MG, QD
     Route: 048
     Dates: start: 201401
  4. COLCRYS [Suspect]
     Active Substance: COLCHICINE
     Dosage: 0.6 MG, BID
     Route: 048

REACTIONS (3)
  - Limb injury [Recovered/Resolved]
  - Gout [Recovered/Resolved]
  - Drug ineffective [Not Recovered/Not Resolved]
